FAERS Safety Report 18406371 (Version 1)
Quarter: 2020Q4

REPORT INFORMATION
  Report Type: Spontaneous
  Country: KR (occurrence: KR)
  Receive Date: 20201020
  Receipt Date: 20201020
  Transmission Date: 20210114
  Serious: Yes (Other)
  Sender: FDA-Public Use
  Company Number: KR-BAYER-2020-217095

PATIENT
  Age: 56 Year
  Sex: Male

DRUGS (5)
  1. NEXAVAR [Suspect]
     Active Substance: SORAFENIB
     Indication: HEPATOCELLULAR CARCINOMA
     Dosage: 400 MG, QD
  2. ENTECAVIR. [Concomitant]
     Active Substance: ENTECAVIR
     Indication: HEPATIC CIRRHOSIS
  3. ENTECAVIR. [Concomitant]
     Active Substance: ENTECAVIR
     Indication: HEPATITIS B
     Dosage: 0.5 MG, UNK
  4. NEXAVAR [Suspect]
     Active Substance: SORAFENIB
     Indication: HEPATOCELLULAR CARCINOMA
     Dosage: 400 MG, BID
  5. YTTRIUM (90 Y) [Concomitant]
     Active Substance: YTTRIUM CHLORIDE Y-90
     Indication: HEPATOCELLULAR CARCINOMA
     Dosage: TOTAL INFUSED RADIATION ACTIVITY WAS 14 GBQ WITH 3 GBQ FOR S4, 3 GBQ FOR S5 AND 8 GBQ FOR S5/S8

REACTIONS (3)
  - Hepatic vein thrombosis [None]
  - Portal vein thrombosis [None]
  - Palmar-plantar erythrodysaesthesia syndrome [None]
